FAERS Safety Report 6691748-7 (Version None)
Quarter: 2010Q2

REPORT INFORMATION
  Report Type: 
  Country: None (occurrence: None)
  Receive Date: 20100422
  Receipt Date: 20090327
  Transmission Date: 20101027
  Serious: No
  Sender: FDA-Public Use
  Company Number: US-ASTRAZENECA-2009UW07780

PATIENT
  Age: 67 Year
  Sex: Male

DRUGS (13)
  1. TOPROL-XL [Suspect]
     Route: 048
     Dates: end: 20090301
  2. TOPROL-XL [Suspect]
     Route: 048
     Dates: start: 20090301
  3. PACERONE [Concomitant]
     Indication: ATRIAL FIBRILLATION
  4. FLECAINIDE ACETATE [Concomitant]
  5. DIOVAN [Concomitant]
  6. ALLOPURINOL [Concomitant]
  7. VOLTAREN [Concomitant]
  8. NASACORT AQ [Concomitant]
  9. ZOCOR [Concomitant]
  10. QUESTRAN [Concomitant]
  11. SINGULAIR [Concomitant]
  12. NIASPAN [Concomitant]
  13. ASPIRIN [Concomitant]

REACTIONS (2)
  - CORNEAL DEPOSITS [None]
  - DYSPNOEA [None]
